FAERS Safety Report 14729831 (Version 10)
Quarter: 2018Q3

REPORT INFORMATION
  Report Type: Spontaneous
  Country: US (occurrence: US)
  Receive Date: 20180406
  Receipt Date: 20180924
  Transmission Date: 20181010
  Serious: Yes (Hospitalization, Other)
  Sender: FDA-Public Use
  Company Number: US-ACTELION-A-NJ2018-170127

PATIENT
  Age: 67 Year
  Sex: Female
  Weight: 83.9 kg

DRUGS (6)
  1. ADEMPAS [Suspect]
     Active Substance: RIOCIGUAT
     Indication: PRODUCT USED FOR UNKNOWN INDICATION
     Dosage: 1.5 MG, TID
     Route: 048
     Dates: start: 20180326
  2. UPTRAVI [Concomitant]
     Active Substance: SELEXIPAG
     Indication: PULMONARY ARTERIAL HYPERTENSION
     Route: 048
  3. OPSUMIT [Suspect]
     Active Substance: MACITENTAN
     Indication: PULMONARY ARTERIAL HYPERTENSION
     Dosage: 10 MG, QD
     Route: 048
  4. ADEMPAS [Suspect]
     Active Substance: RIOCIGUAT
     Dosage: 1.5 MG, TID
     Route: 048
  5. ADEMPAS [Suspect]
     Active Substance: RIOCIGUAT
     Dosage: 2 MG, TID
     Route: 048
  6. XARELTO [Concomitant]
     Active Substance: RIVAROXABAN

REACTIONS (23)
  - Abdominal tenderness [Unknown]
  - Cardiac failure [Unknown]
  - Pallor [Unknown]
  - Dyspnoea [Unknown]
  - Renal failure [Unknown]
  - Heart rate increased [Unknown]
  - Oedema peripheral [Unknown]
  - Dyspnoea exertional [Unknown]
  - Blood pressure abnormal [Unknown]
  - Haemodialysis [Unknown]
  - Gait disturbance [Unknown]
  - Malaise [Unknown]
  - Dizziness [Unknown]
  - Weight increased [Unknown]
  - Fluid overload [Unknown]
  - Asthenia [Unknown]
  - Fluid retention [Unknown]
  - Oxygen saturation decreased [Unknown]
  - Fatigue [Unknown]
  - Abdominal distension [Unknown]
  - Dyspnoea at rest [Unknown]
  - Oedema [Unknown]
  - Blood creatinine increased [Unknown]

NARRATIVE: CASE EVENT DATE: 20170326
